FAERS Safety Report 25529569 (Version 1)
Quarter: 2025Q3

REPORT INFORMATION
  Report Type: Spontaneous
  Country: US (occurrence: None)
  Receive Date: 20250708
  Receipt Date: 20250708
  Transmission Date: 20251020
  Serious: Yes (Death)
  Sender: FDA-CTU
  Company Number: None

PATIENT
  Age: 59 Year
  Sex: Female
  Weight: 58 kg

DRUGS (5)
  1. FLUOROURACIL [Suspect]
     Active Substance: FLUOROURACIL
     Dates: end: 20250105
  2. DEXAMETHASONE [Suspect]
     Active Substance: DEXAMETHASONE
     Dates: end: 20241217
  3. FLOXURIDINE [Suspect]
     Active Substance: FLOXURIDINE
     Dates: end: 20241217
  4. HEPARIN SODIUM [Suspect]
     Active Substance: HEPARIN SODIUM
     Dates: end: 20241217
  5. ELOXATIN [Suspect]
     Active Substance: OXALIPLATIN
     Dates: end: 20250103

REACTIONS (1)
  - Hepatic failure [None]

NARRATIVE: CASE EVENT DATE: 20250109
